FAERS Safety Report 12798470 (Version 1)
Quarter: 2016Q3

REPORT INFORMATION
  Report Type: Spontaneous
  Country: ES (occurrence: ES)
  Receive Date: 20160930
  Receipt Date: 20160930
  Transmission Date: 20161109
  Serious: Yes (Death, Other)
  Sender: FDA-Public Use
  Company Number: ES-AMGEN-ESPSP2016132116

PATIENT

DRUGS (7)
  1. PEGFILGRASTIM [Suspect]
     Active Substance: PEGFILGRASTIM
     Indication: PRODUCT USED FOR UNKNOWN INDICATION
     Dosage: 6MG, ADMINISTERED IN A SINGLE (PER CYCLE) ON DAY 2
     Route: 058
  2. CYCLOPHOSPHAMIDE. [Suspect]
     Active Substance: CYCLOPHOSPHAMIDE
     Indication: DIFFUSE LARGE B-CELL LYMPHOMA
     Dosage: 750 MG/M2, UNK
     Route: 065
  3. DOXORUBICIN [Suspect]
     Active Substance: DOXORUBICIN
     Indication: DIFFUSE LARGE B-CELL LYMPHOMA
     Dosage: 50 MG/M2, UNK
     Route: 065
  4. VINCRISTINE [Suspect]
     Active Substance: VINCRISTINE
     Indication: DIFFUSE LARGE B-CELL LYMPHOMA
     Dosage: 1.4 MG/M2 (MAXIMAL DOSE 2 MG), UNK
     Route: 065
  5. CYTARABINE. [Suspect]
     Active Substance: CYTARABINE
     Indication: PROPHYLAXIS
     Dosage: CYCLES 1, 2, AND 6, UNK
     Route: 065
  6. RITUXIMAB [Suspect]
     Active Substance: RITUXIMAB
     Indication: DIFFUSE LARGE B-CELL LYMPHOMA
     Dosage: 375 MG/M2, 6 CYCLES EVERY 14 DAYS
     Route: 042
  7. PREDNISONE. [Suspect]
     Active Substance: PREDNISONE
     Indication: DIFFUSE LARGE B-CELL LYMPHOMA
     Dosage: 100 MG, QD FOR 5 DAYS
     Route: 065

REACTIONS (1)
  - Sepsis [Fatal]
